FAERS Safety Report 16233471 (Version 19)
Quarter: 2021Q3

REPORT INFORMATION
  Report Type: Report from Study
  Country: US (occurrence: US)
  Receive Date: 20190424
  Receipt Date: 20210728
  Transmission Date: 20211014
  Serious: Yes (Life-Threatening, Hospitalization, Other)
  Sender: FDA-Public Use
  Company Number: PHEH2019US017505

PATIENT
  Sex: Female
  Weight: 51.25 kg

DRUGS (12)
  1. SPIRONOLACTONE. [Concomitant]
     Active Substance: SPIRONOLACTONE
     Indication: PRODUCT USED FOR UNKNOWN INDICATION
     Dosage: UNK
     Route: 065
  2. TREPROSTINIL. [Suspect]
     Active Substance: TREPROSTINIL
     Dosage: UNK (76 NG/KG/MIN, CONTINOUS (STRENGTH: 1MG/ML))
     Route: 042
  3. TREPROSTINIL. [Suspect]
     Active Substance: TREPROSTINIL
     Dosage: UNK (76 NG/KG/MIN, CONTINOUS (STRENGTH: 1 MG/ML))
     Route: 042
  4. TREPROSTINIL. [Suspect]
     Active Substance: TREPROSTINIL
     Dosage: UNK (50 NG/KG/MIN, (STRENGTH: 5MG/ML)))
     Route: 042
  5. TREPROSTINIL. [Suspect]
     Active Substance: TREPROSTINIL
     Indication: PULMONARY ARTERIAL HYPERTENSION
     Dosage: UNK (76 NG/KG/MIN, CONTINOUS (STRENGTH: 1MG/ML))
     Route: 058
     Dates: start: 20190410
  6. TREPROSTINIL. [Suspect]
     Active Substance: TREPROSTINIL
     Dosage: UNK (70 NG/KG/MIN, (STRENGTH: 5MG/ML)))
     Route: 042
  7. EPOPROSTENOL. [Concomitant]
     Active Substance: EPOPROSTENOL
     Indication: PRODUCT USED FOR UNKNOWN INDICATION
     Dosage: UNK
     Route: 065
  8. TREPROSTINIL. [Suspect]
     Active Substance: TREPROSTINIL
     Dosage: UNK (76 NG/KG/MIN, CONTINOUS (STRENGTH: 1MG/ML))
     Route: 042
  9. TREPROSTINIL. [Suspect]
     Active Substance: TREPROSTINIL
     Dosage: 40 NG/KG/MIN, CONTINUOUS (5 MG/ML)
     Route: 042
  10. TREPROSTINIL. [Suspect]
     Active Substance: TREPROSTINIL
     Dosage: UNK (76 NG/KG/MIN, CONTINOUS (STRENGTH: 1MG/ML))
     Route: 042
  11. SILDENAFIL. [Concomitant]
     Active Substance: SILDENAFIL
     Indication: PRODUCT USED FOR UNKNOWN INDICATION
     Dosage: UNK
     Route: 065
  12. TREPROSTINIL. [Suspect]
     Active Substance: TREPROSTINIL
     Dosage: UNK (76 NG/KG/MIN, CONTINOUS (STRENGTH: 1MG/ML))
     Route: 042

REACTIONS (25)
  - Impaired healing [Unknown]
  - Pain in extremity [Unknown]
  - Localised infection [Unknown]
  - Asthenia [Unknown]
  - Pulmonary hypertension [Unknown]
  - Thermal burn [Unknown]
  - Decreased appetite [Unknown]
  - Fatigue [Unknown]
  - Dizziness [Unknown]
  - Pneumonia [Unknown]
  - Rash [Unknown]
  - Fall [Unknown]
  - Limb injury [Unknown]
  - Cardiac failure congestive [Unknown]
  - Oedema peripheral [Unknown]
  - Cellulitis [Unknown]
  - Weight decreased [Unknown]
  - Breath sounds abnormal [Unknown]
  - Malaise [Unknown]
  - Joint injury [Unknown]
  - Nausea [Unknown]
  - Diarrhoea [Unknown]
  - Hypotension [Unknown]
  - Fluid retention [Unknown]
  - Dyspnoea [Not Recovered/Not Resolved]
